FAERS Safety Report 6748431-9 (Version None)
Quarter: 2010Q2

REPORT INFORMATION
  Report Type: 
  Country: None (occurrence: None)
  Receive Date: 20100526
  Receipt Date: 20090508
  Transmission Date: 20101027
  Serious: Yes (Other)
  Sender: FDA-Public Use
  Company Number: 278790

PATIENT
  Age: 57 Year
  Sex: Female
  Weight: 70.3 kg

DRUGS (6)
  1. ACTIVELLA [Suspect]
     Indication: HORMONE THERAPY
     Dosage: ORAL
     Route: 048
  2. PREMARIN [Suspect]
     Indication: HORMONE THERAPY
  3. PREMPRO [Suspect]
     Indication: HORMONE THERAPY
     Dosage: 0.625, ORAL
     Route: 048
     Dates: start: 19970101, end: 20070301
  4. PREMPHASE (PREMARIN;CYCRIN 14/14) [Suspect]
     Indication: HORMONE THERAPY
  5. PROVERA [Suspect]
     Indication: HORMONE THERAPY
  6. CELEBREX [Concomitant]

REACTIONS (1)
  - BREAST CANCER METASTATIC [None]
